FAERS Safety Report 5584499-3 (Version None)
Quarter: 2008Q1

REPORT INFORMATION
  Report Type: 
  Country: None (occurrence: None)
  Receive Date: 20080103
  Receipt Date: 20080103
  Transmission Date: 20080703
  Serious: Yes (Death, Hospitalization)
  Sender: FDA-Public Use
  Company Number: 430008E07ITA

PATIENT
  Age: 70 Year
  Sex: Male

DRUGS (6)
  1. NOVANTRONE [Suspect]
     Indication: ACUTE MYELOID LEUKAEMIA
     Dosage: 12 MG,
     Dates: start: 20061030, end: 20061103
  2. GEMTUZUMAB OZOGAMICIN                       (GENTUZUMAB OZOGAMICIN) [Suspect]
     Indication: ACUTE MYELOID LEUKAEMIA
     Dosage: 10 MG,
     Dates: start: 20061011
  3. CYTARABINE [Suspect]
     Indication: ACUTE MYELOID LEUKAEMIA
     Dosage: 120 MG,
     Dates: start: 20061030, end: 20061104
  4. ETOPOSIDE [Suspect]
     Indication: ACUTE MYELOID LEUKAEMIA
     Dosage: 170 MG,
     Dates: start: 20061030, end: 20061101
  5. ITRACONAZOLE [Concomitant]
  6. ACYCLOVIR [Concomitant]

REACTIONS (3)
  - DRUG TOXICITY [None]
  - HEPATIC FAILURE [None]
  - MULTI-ORGAN FAILURE [None]
